FAERS Safety Report 6392143-0 (Version None)
Quarter: 2009Q4

REPORT INFORMATION
  Report Type: 
  Country: None (occurrence: None)
  Receive Date: 20091001
  Receipt Date: 20090713
  Transmission Date: 20100525
  Serious: Yes (Other)
  Sender: FDA-Public Use
  Company Number: US-1170119

PATIENT
  Age: 63 Year
  Sex: Female
  Weight: 48 kg

DRUGS (2)
  1. TRIESENCE [Suspect]
     Indication: MACULAR OEDEMA
     Dosage: INTRAOCULAR
     Route: 031
     Dates: start: 20090618, end: 20090618
  2. TRIESENCE [Suspect]
     Indication: MACULOPATHY
     Dosage: INTRAOCULAR
     Route: 031
     Dates: start: 20090618, end: 20090618

REACTIONS (1)
  - EYE INFECTION INTRAOCULAR [None]
